FAERS Safety Report 4700022-7 (Version None)
Quarter: 2005Q2

REPORT INFORMATION
  Report Type: 
  Country: None (occurrence: None)
  Receive Date: 20050627
  Receipt Date: 20050618
  Transmission Date: 20051028
  Serious: Yes (Other)
  Sender: FDA-Public Use
  Company Number: PHEH2005US06906

PATIENT
  Sex: Female

DRUGS (5)
  1. ZELNORM [Suspect]
     Dosage: UNK, UNK
     Dates: start: 20050301
  2. GLUCOPHAGE [Suspect]
  3. AMARYL [Suspect]
  4. DIGOXIN [Suspect]
  5. NORVASC [Suspect]

REACTIONS (3)
  - ANGIONEUROTIC OEDEMA [None]
  - ASTHMA [None]
  - DRUG INTERACTION [None]
